FAERS Safety Report 17960940 (Version 5)
Quarter: 2021Q1

REPORT INFORMATION
  Report Type: Spontaneous
  Country: US (occurrence: US)
  Receive Date: 20200630
  Receipt Date: 20210312
  Transmission Date: 20210419
  Serious: No
  Sender: FDA-Public Use
  Company Number: US-PFIZER INC-2020250434

PATIENT
  Age: 39 Year
  Sex: Female

DRUGS (4)
  1. SOMAVERT [Suspect]
     Active Substance: PEGVISOMANT
     Indication: PITUITARY TUMOUR BENIGN
     Dosage: 20 MG, ALTERNATE DAY (QOD)
     Route: 058
     Dates: start: 20200513
  2. SOMAVERT [Suspect]
     Active Substance: PEGVISOMANT
     Indication: THYROID MASS
     Dosage: 20 MG  (TIW)
     Route: 058
     Dates: start: 20200509
  3. SOMAVERT [Suspect]
     Active Substance: PEGVISOMANT
     Indication: GIGANTISM
     Dosage: 20 MG, THREE TIMES A WEEK (MON, WED, FRI)
     Route: 058
     Dates: start: 20200508
  4. SOMAVERT [Suspect]
     Active Substance: PEGVISOMANT
     Indication: ACROMEGALY
     Dosage: 20 MG, ALTERNATE DAY (QOD)
     Route: 058
     Dates: start: 20200508

REACTIONS (5)
  - Headache [Unknown]
  - Gastrointestinal disorder [Not Recovered/Not Resolved]
  - Off label use [Unknown]
  - Abdominal pain upper [Not Recovered/Not Resolved]
  - Abdominal distension [Not Recovered/Not Resolved]

NARRATIVE: CASE EVENT DATE: 2020
